FAERS Safety Report 14337914 (Version 1)
Quarter: 2017Q4

REPORT INFORMATION
  Report Type: Spontaneous
  Country: ES (occurrence: ES)
  Receive Date: 20171229
  Receipt Date: 20171229
  Transmission Date: 20180321
  Serious: Yes (Other)
  Sender: FDA-Public Use
  Company Number: ES-TEVA-2017-ES-838968

PATIENT
  Age: 13 Year
  Sex: Male

DRUGS (10)
  1. ERWINASE (ASPARAGINASE) [Suspect]
     Active Substance: ASPARAGINASE ERWINIA CHRYSANTHEMI
     Indication: ACUTE LYMPHOCYTIC LEUKAEMIA
     Route: 030
     Dates: start: 20170527, end: 20170531
  2. OMEPRAZOL (2141A) [Concomitant]
     Indication: PROPHYLAXIS
     Route: 048
     Dates: start: 20170509, end: 20170524
  3. SUCRALFATO (77A) [Concomitant]
     Indication: PROPHYLAXIS
     Route: 048
     Dates: start: 20170518, end: 20170524
  4. PIPERACILINA + TAZOBACTAM [Suspect]
     Active Substance: PIPERACILLIN SODIUM\TAZOBACTAM SODIUM
     Indication: PROPHYLAXIS
     Route: 042
     Dates: start: 20170504, end: 20170529
  5. CITARABINA (124A) [Suspect]
     Active Substance: CYTARABINE
     Indication: ACUTE LYMPHOCYTIC LEUKAEMIA
     Route: 042
     Dates: start: 20170523, end: 20170524
  6. SEPTRIN FORTE 160 MG/800 MG COMPRIMIDOS, 50 COMPRIMIDOS [Concomitant]
     Indication: PROPHYLAXIS
     Route: 048
     Dates: start: 20170504
  7. VINCRISTINE [Suspect]
     Active Substance: VINCRISTINE
     Indication: ACUTE LYMPHOCYTIC LEUKAEMIA
     Route: 042
     Dates: start: 20170509, end: 20170523
  8. ACETILCISTEINA (233A) [Concomitant]
     Indication: PROPHYLAXIS
     Route: 042
     Dates: start: 20170519, end: 20170521
  9. ONDANSETRON (2575A) [Concomitant]
     Indication: PROPHYLAXIS
     Route: 042
     Dates: start: 20170509, end: 20170524
  10. ACICLOVIR (201A) [Concomitant]
     Indication: PROPHYLAXIS
     Route: 048
     Dates: start: 20170504, end: 20170518

REACTIONS (3)
  - Klebsiella bacteraemia [Recovered/Resolved]
  - Pseudomonal bacteraemia [Recovered/Resolved]
  - Agranulocytosis [Recovered/Resolved]

NARRATIVE: CASE EVENT DATE: 20170530
